FAERS Safety Report 14653873 (Version 1)
Quarter: 2018Q1

REPORT INFORMATION
  Report Type: Spontaneous
  Country: US (occurrence: US)
  Receive Date: 20180319
  Receipt Date: 20180319
  Transmission Date: 20180509
  Serious: Yes (Other)
  Sender: FDA-Public Use
  Company Number: US-PFIZER INC-2018113675

PATIENT
  Age: 69 Year
  Sex: Female
  Weight: 56 kg

DRUGS (1)
  1. XELJANZ [Suspect]
     Active Substance: TOFACITINIB CITRATE
     Indication: RHEUMATOID ARTHRITIS
     Dosage: 5 MG, 1X/DAY
     Route: 048
     Dates: start: 201705, end: 201801

REACTIONS (1)
  - Skin cancer [Recovering/Resolving]

NARRATIVE: CASE EVENT DATE: 201802
